FAERS Safety Report 4665538-0 (Version None)
Quarter: 2005Q2

REPORT INFORMATION
  Report Type: 
  Country: None (occurrence: None)
  Receive Date: 20050518
  Receipt Date: 20050505
  Transmission Date: 20051028
  Serious: Yes (Other)
  Sender: FDA-Public Use
  Company Number: 2005071138

PATIENT
  Age: 70 Year
  Sex: Male
  Weight: 79.3795 kg

DRUGS (6)
  1. SUDAFED SINUS + ALLERGY (PSEUDOEPHEDRINE, CHLORPHENIRAMINE) [Suspect]
     Indication: HYPERSENSITIVITY
     Dosage: 1 TAB Q 4-6 HRS (3 TIMES) ORAL
     Route: 048
     Dates: start: 20050502, end: 20050504
  2. ISOPHANE INSULIN [Concomitant]
  3. GEMFIBROZIL [Concomitant]
  4. VALSARTAN [Concomitant]
  5. LISINOPRIL [Concomitant]
  6. PANTOPRAZOLE [Concomitant]

REACTIONS (1)
  - OLIGURIA [None]
